FAERS Safety Report 25834321 (Version 3)
Quarter: 2025Q4

REPORT INFORMATION
  Report Type: Spontaneous
  Country: EU (occurrence: EU)
  Receive Date: 20250923
  Receipt Date: 20251125
  Transmission Date: 20260117
  Serious: Yes (Other)
  Sender: SANDOZ
  Company Number: EU-NOVPHSZ-PHHY2019PL162598

PATIENT
  Age: 9 Year
  Sex: Male

DRUGS (18)
  1. CYCLOSPORINE [Suspect]
     Active Substance: CYCLOSPORINE
     Indication: Prophylaxis
     Dosage: UNK
     Route: 042
  2. CYCLOSPORINE [Suspect]
     Active Substance: CYCLOSPORINE
     Indication: Prophylaxis against graft versus host disease
  3. CIPROFLOXACIN [Suspect]
     Active Substance: CIPROFLOXACIN
     Indication: BK virus infection
     Dosage: UNK
     Route: 065
  4. CIPROFLOXACIN [Suspect]
     Active Substance: CIPROFLOXACIN
     Indication: Prophylaxis against graft versus host disease
  5. CIDOFOVIR [Suspect]
     Active Substance: CIDOFOVIR
     Indication: Viraemia
     Dosage: 5 DOSAGE FORM (ON DAYS +19, +27, +34, +41+48-TOTAL)
     Route: 042
  6. CIDOFOVIR [Suspect]
     Active Substance: CIDOFOVIR
     Indication: BK virus infection
     Dosage: ON DAYS +19, +27, +34, +41+48-TOTAL
     Route: 042
  7. CIDOFOVIR [Suspect]
     Active Substance: CIDOFOVIR
     Indication: Viral haemorrhagic cystitis
     Dosage: UNK
     Route: 042
  8. CIDOFOVIR [Suspect]
     Active Substance: CIDOFOVIR
     Indication: Adenovirus infection
     Dosage: UNK
     Route: 043
  9. CIDOFOVIR [Suspect]
     Active Substance: CIDOFOVIR
     Indication: Adenoviral haemorrhagic cystitis
     Dosage: UNK
     Route: 061
  10. FOSCARNET SODIUM [Suspect]
     Active Substance: FOSCARNET SODIUM
     Indication: Cytomegalovirus infection
     Dosage: UNK
     Route: 042
  11. FOSCARNET SODIUM [Suspect]
     Active Substance: FOSCARNET SODIUM
     Indication: Cytomegalovirus infection reactivation
  12. GANCICLOVIR [Suspect]
     Active Substance: GANCICLOVIR
     Indication: Cytomegalovirus viraemia
     Dosage: UNK
     Route: 065
  13. MYCOPHENOLATE MOFETIL [Suspect]
     Active Substance: MYCOPHENOLATE MOFETIL
     Indication: Product used for unknown indication
     Dosage: UNK
     Route: 065
  14. NALBUPHINE [Suspect]
     Active Substance: NALBUPHINE
     Indication: Pain
     Dosage: UNK, INFUSION
     Route: 042
  15. NALBUPHINE [Suspect]
     Active Substance: NALBUPHINE
     Dosage: UNK, INFUSION
     Route: 065
  16. CIPROFLOXACIN [Concomitant]
     Active Substance: CIPROFLOXACIN
     Indication: BK virus infection
     Dosage: UNK
     Route: 065
  17. CIPROFLOXACIN [Concomitant]
     Active Substance: CIPROFLOXACIN
     Indication: Viruria
     Dosage: UNK
     Route: 065
  18. NALBUPHINE [Concomitant]
     Active Substance: NALBUPHINE
     Indication: Pain
     Dosage: UNK
     Route: 065

REACTIONS (6)
  - Haematuria [Recovered/Resolved]
  - Renal impairment [Recovering/Resolving]
  - Acute kidney injury [Not Recovered/Not Resolved]
  - Diarrhoea [Unknown]
  - Drug ineffective [Recovered/Resolved]
  - Off label use [Unknown]
